FAERS Safety Report 6242454-4 (Version None)
Quarter: 2009Q2

REPORT INFORMATION
  Report Type: 
  Country: None (occurrence: None)
  Receive Date: 20090622
  Receipt Date: 20090622
  Transmission Date: 20091009
  Serious: Yes (Other)
  Sender: FDA-Public Use
  Company Number: None

PATIENT
  Sex: Female
  Weight: 92.9874 kg

DRUGS (1)
  1. ALLI [Suspect]
     Indication: WEIGHT CONTROL
     Dosage: -1- 60 MG BEFORE MEALS UP TO 3X DAILY PO
     Route: 048
     Dates: start: 20080201, end: 20090423

REACTIONS (7)
  - ASTHENIA [None]
  - CHEST PAIN [None]
  - HEART RATE INCREASED [None]
  - HYPERHIDROSIS [None]
  - MUSCULOSKELETAL PAIN [None]
  - PALPITATIONS [None]
  - RESPIRATORY RATE INCREASED [None]
